FAERS Safety Report 14782582 (Version 1)
Quarter: 2018Q2

REPORT INFORMATION
  Report Type: Spontaneous
  Country: US (occurrence: US)
  Receive Date: 20180420
  Receipt Date: 20180420
  Transmission Date: 20180711
  Serious: No
  Sender: FDA-Public Use
  Company Number: US-TEVA-2018-US-881512

PATIENT
  Sex: Female

DRUGS (1)
  1. NEOMYCIN W/POLYMYXIN B/PRAMOXINE [Suspect]
     Active Substance: NEOMYCIN\POLYMYXIN B\PRAMOXINE HYDROCHLORIDE
     Indication: BLADDER IRRIGATION

REACTIONS (2)
  - Wrong technique in product usage process [Unknown]
  - Product preparation error [Unknown]
